FAERS Safety Report 5292590-4 (Version None)
Quarter: 2007Q2

REPORT INFORMATION
  Report Type: 
  Country: None (occurrence: None)
  Receive Date: 20070404
  Receipt Date: 20070319
  Transmission Date: 20071010
  Serious: Yes (Other)
  Sender: FDA-Public Use
  Company Number: DSA_61480_2007

PATIENT
  Sex: Male

DRUGS (3)
  1. DIHYDERGOT (DIHYDROERGOTAMINE MESILATE) [Suspect]
     Indication: CLUSTER HEADACHE
     Dosage: 7 MG QWK IV
     Route: 042
  2. TRITACE [Concomitant]
  3. ALDACTONE [Concomitant]

REACTIONS (4)
  - CLUSTER HEADACHE [None]
  - CONDITION AGGRAVATED [None]
  - DISEASE PROGRESSION [None]
  - MIGRAINE [None]
